FAERS Safety Report 8336781 (Version 44)
Quarter: 2016Q1

REPORT INFORMATION
  Report Type: Spontaneous
  Country: CA (occurrence: CA)
  Receive Date: 20120113
  Receipt Date: 20160325
  Transmission Date: 20160526
  Serious: Yes (Other)
  Sender: FDA-Public Use
  Company Number: CA-ROCHE-1029945

PATIENT
  Age: 53 Year
  Sex: Female
  Weight: 114 kg

DRUGS (21)
  1. ADVAIR HFA [Concomitant]
     Active Substance: FLUTICASONE PROPIONATE\SALMETEROL XINAFOATE
  2. XOLAIR [Suspect]
     Active Substance: OMALIZUMAB
     Route: 058
     Dates: start: 20160217
  3. XOLAIR [Suspect]
     Active Substance: OMALIZUMAB
     Indication: ASTHMA
     Route: 058
     Dates: start: 20100609
  4. XOLAIR [Suspect]
     Active Substance: OMALIZUMAB
     Route: 058
     Dates: start: 20131008
  5. XOLAIR [Suspect]
     Active Substance: OMALIZUMAB
     Route: 058
     Dates: start: 20150708
  6. XOLAIR [Suspect]
     Active Substance: OMALIZUMAB
     Route: 058
     Dates: start: 20151109
  7. XOLAIR [Suspect]
     Active Substance: OMALIZUMAB
     Route: 058
     Dates: start: 20131203
  8. XOLAIR [Suspect]
     Active Substance: OMALIZUMAB
     Route: 058
     Dates: start: 20140812
  9. XOLAIR [Suspect]
     Active Substance: OMALIZUMAB
     Route: 058
     Dates: start: 20160304
  10. XOLAIR [Suspect]
     Active Substance: OMALIZUMAB
     Route: 058
     Dates: start: 20160316
  11. PREDNISONE. [Concomitant]
     Active Substance: PREDNISONE
  12. XOLAIR [Suspect]
     Active Substance: OMALIZUMAB
     Route: 058
     Dates: start: 20150128
  13. XOLAIR [Suspect]
     Active Substance: OMALIZUMAB
     Route: 058
     Dates: start: 20150819
  14. VENTOLIN [Concomitant]
     Active Substance: ALBUTEROL SULFATE
  15. XOLAIR [Suspect]
     Active Substance: OMALIZUMAB
     Route: 058
     Dates: start: 20130730
  16. XOLAIR [Suspect]
     Active Substance: OMALIZUMAB
     Route: 058
     Dates: start: 20140603
  17. XOLAIR [Suspect]
     Active Substance: OMALIZUMAB
     Route: 058
     Dates: start: 20141119
  18. XOLAIR [Suspect]
     Active Substance: OMALIZUMAB
     Route: 058
     Dates: start: 20151216
  19. SINGULAIR [Concomitant]
     Active Substance: MONTELUKAST SODIUM
  20. FLOVENT [Concomitant]
     Active Substance: FLUTICASONE PROPIONATE
  21. INFLUENZA VACCINE [Concomitant]
     Active Substance: INFLUENZA VIRUS VACCINE
     Route: 065
     Dates: start: 201310

REACTIONS (32)
  - Hypersensitivity [Recovering/Resolving]
  - Nasopharyngitis [Recovered/Resolved]
  - Intervertebral disc protrusion [Unknown]
  - Type 2 diabetes mellitus [Unknown]
  - Seasonal allergy [Unknown]
  - Dyspnoea [Unknown]
  - Gastrointestinal disorder [Unknown]
  - Blood pressure increased [Not Recovered/Not Resolved]
  - Lower respiratory tract infection [Recovered/Resolved]
  - Haemorrhage [Unknown]
  - Pyrexia [Unknown]
  - Body temperature decreased [Unknown]
  - Mobility decreased [Unknown]
  - Productive cough [Recovered/Resolved]
  - Fatigue [Recovered/Resolved]
  - Weight decreased [Unknown]
  - Glucose tolerance impaired [Unknown]
  - Paranasal sinus discomfort [Not Recovered/Not Resolved]
  - Respiratory disorder [Unknown]
  - Influenza [Unknown]
  - Abdominal discomfort [Unknown]
  - Diarrhoea [Unknown]
  - Viral infection [Unknown]
  - Bursitis [Unknown]
  - Condition aggravated [Unknown]
  - Chest discomfort [Unknown]
  - Lung infection [Unknown]
  - Gastroenteritis viral [Recovered/Resolved]
  - Depressed mood [Unknown]
  - Osteoporosis [Unknown]
  - Blood pressure diastolic decreased [Unknown]
  - Oropharyngeal pain [Unknown]

NARRATIVE: CASE EVENT DATE: 20100804
